FAERS Safety Report 5689770-2 (Version None)
Quarter: 2008Q1

REPORT INFORMATION
  Report Type: 
  Country: None (occurrence: None)
  Receive Date: 20080331
  Receipt Date: 20080314
  Transmission Date: 20080703
  Serious: Yes (Hospitalization, Other)
  Sender: FDA-Public Use
  Company Number: US-AMGEN-QUU250698

PATIENT
  Sex: Female
  Weight: 49.9 kg

DRUGS (13)
  1. ENBREL [Suspect]
     Indication: RHEUMATOID ARTHRITIS
     Route: 058
     Dates: start: 20000223, end: 20071001
  2. CALCIUM [Concomitant]
     Route: 048
  3. CARBIDOPA AND LEVODOPA [Concomitant]
     Route: 048
  4. HYDROXYZINE PAMOATE [Concomitant]
  5. ALBUTEROL [Concomitant]
     Route: 055
  6. FUROSEMIDE [Concomitant]
  7. AMLODIPINE BESYLATE [Concomitant]
  8. LEVOTHYROXINE SODIUM [Concomitant]
  9. LIPITOR [Concomitant]
  10. RANITIDINE HYDROCHLORIDE [Concomitant]
  11. COUMADIN [Concomitant]
  12. KLOR-CON [Concomitant]
  13. ACTONEL [Concomitant]
     Route: 048

REACTIONS (14)
  - ARTHRALGIA [None]
  - ASTHMA [None]
  - CHEST PAIN [None]
  - DEEP VEIN THROMBOSIS [None]
  - DIZZINESS [None]
  - HYPERTENSION [None]
  - HYPOTONIA [None]
  - JOINT SWELLING [None]
  - MUSCULOSKELETAL STIFFNESS [None]
  - OEDEMA PERIPHERAL [None]
  - OSTEOPOROTIC FRACTURE [None]
  - SYNOVITIS [None]
  - TRICUSPID VALVE INCOMPETENCE [None]
  - WEIGHT DECREASED [None]
